FAERS Safety Report 15619610 (Version 1)
Quarter: 2018Q4

REPORT INFORMATION
  Report Type: Report from Study
  Country: None (occurrence: BR)
  Receive Date: 20181115
  Receipt Date: 20181115
  Transmission Date: 20190205
  Serious: Yes (Other)
  Sender: FDA-Public Use
  Company Number: BR-ABBVIE-18K-020-2549985-00

PATIENT
  Sex: Female
  Weight: 40 kg

DRUGS (5)
  1. HUMIRA [Suspect]
     Active Substance: ADALIMUMAB
     Indication: RHEUMATOID ARTHRITIS
     Route: 058
     Dates: start: 20160101
  2. PROLIA [Concomitant]
     Active Substance: DENOSUMAB
     Indication: OSTEOPOROSIS
  3. VITAMIN D [Concomitant]
     Active Substance: CHOLECALCIFEROL
     Indication: OSTEOPOROSIS
  4. EUTHYROX [Concomitant]
     Active Substance: LEVOTHYROXINE SODIUM
     Indication: HYPOTHYROIDISM
  5. CALCIUM [Concomitant]
     Active Substance: CALCIUM
     Indication: OSTEOPOROSIS

REACTIONS (7)
  - Asthenia [Recovered/Resolved]
  - White blood cell count decreased [Unknown]
  - Post procedural complication [Unknown]
  - Neutrophil count decreased [Unknown]
  - Hypophagia [Unknown]
  - Gingival recession [Recovered/Resolved]
  - Immunodeficiency [Recovered/Resolved]

NARRATIVE: CASE EVENT DATE: 2018
